FAERS Safety Report 20267036 (Version 2)
Quarter: 2022Q1

REPORT INFORMATION
  Report Type: Spontaneous
  Country: US (occurrence: US)
  Receive Date: 20211231
  Receipt Date: 20220216
  Transmission Date: 20220423
  Serious: Yes (Hospitalization, Other)
  Sender: FDA-Public Use
  Company Number: US-PFIZER INC-202101742279

PATIENT
  Age: 69 Year
  Sex: Male
  Weight: 90.703 kg

DRUGS (2)
  1. BOSULIF [Suspect]
     Active Substance: BOSUTINIB MONOHYDRATE
     Indication: Chronic myeloid leukaemia
     Dosage: 500 MG, DAILY
     Dates: start: 202011
  2. DOXYCYCLINE CALCIUM [Concomitant]
     Active Substance: DOXYCYCLINE CALCIUM
     Dosage: 100 MG, 2X/DAY  (DAILY FOR 21 DAYS)
     Dates: start: 2021

REACTIONS (2)
  - Pleural effusion [Not Recovered/Not Resolved]
  - Bacterial test positive [Unknown]

NARRATIVE: CASE EVENT DATE: 20211130
